FAERS Safety Report 8553687 (Version 5)
Quarter: 2013Q3

REPORT INFORMATION
  Report Type: Report from Study
  Country: MX (occurrence: MX)
  Receive Date: 20120509
  Receipt Date: 20130716
  Transmission Date: 20140515
  Serious: Yes (Death, Hospitalization)
  Sender: FDA-Public Use
  Company Number: PHHY2012MX038439

PATIENT
  Age: 79 Year
  Sex: Female

DRUGS (2)
  1. DIOVAN [Suspect]
     Indication: HYPERTENSION
     Dosage: 1 DF, DAILY
     Dates: start: 200911, end: 201204
  2. INSULIN [Concomitant]
     Dosage: 18 U, DAILY

REACTIONS (3)
  - Infarction [Fatal]
  - Pneumonia [Fatal]
  - Malaise [Fatal]
